FAERS Safety Report 6868786-4 (Version None)
Quarter: 2010Q3

REPORT INFORMATION
  Report Type: 
  Country: None (occurrence: None)
  Receive Date: 20100722
  Receipt Date: 20080624
  Transmission Date: 20110219
  Serious: No
  Sender: FDA-Public Use
  Company Number: US-PFIZER INC-2008053831

PATIENT
  Sex: Female
  Weight: 53.07 kg

DRUGS (7)
  1. CHANTIX [Suspect]
     Indication: SMOKING CESSATION THERAPY
     Route: 048
     Dates: start: 20080601
  2. DIAZEPAM [Suspect]
     Indication: INSOMNIA
  3. METOPROLOL SUCCINATE [Concomitant]
  4. SIMVASTATIN [Concomitant]
  5. TRIMETHOPRIM [Concomitant]
  6. IBANDRONATE SODIUM [Concomitant]
  7. ORAL CONTRACEPTIVE NOS [Concomitant]

REACTIONS (7)
  - ABNORMAL DREAMS [None]
  - FATIGUE [None]
  - HEADACHE [None]
  - NAUSEA [None]
  - SLEEP DISORDER [None]
  - STRESS [None]
  - WEIGHT INCREASED [None]
